FAERS Safety Report 9540832 (Version 3)
Quarter: 2013Q4

REPORT INFORMATION
  Report Type: Report from Study
  Country: DE (occurrence: DE)
  Receive Date: 20130920
  Receipt Date: 20131007
  Transmission Date: 20140711
  Serious: Yes (Death, Hospitalization)
  Sender: FDA-Public Use
  Company Number: PHHY2013DE105073

PATIENT
  Sex: Male
  Weight: 71.7 kg

DRUGS (11)
  1. ICL670A [Suspect]
     Indication: IRON OVERLOAD
     Dosage: 500 MG, QD
     Route: 048
     Dates: start: 20130624, end: 20130812
  2. PANTOZOL [Concomitant]
     Indication: PROPHYLAXIS
     Dosage: 20 MG, DAILY
     Dates: start: 20130627, end: 20130806
  3. CIPROBAY (CIPROFLOXACIN HYDROCHLORIDE) [Concomitant]
     Indication: PROPHYLAXIS
     Dosage: 1000 MG, DAILY
     Dates: start: 20130313
  4. HYDROCORTISON ACIS [Concomitant]
     Indication: PROPHYLAXIS
     Dosage: 20 MG, DAILY
     Dates: start: 20130803
  5. DECITABINE [Concomitant]
     Indication: ACUTE MYELOID LEUKAEMIA
     Dosage: 37 MG, DAILY
     Dates: start: 20130513, end: 20130517
  6. DECITABINE [Concomitant]
     Dosage: 37 MG, DAILY
     Dates: start: 20130610, end: 20130614
  7. DECITABINE [Concomitant]
     Dosage: 37 MG, DAILY
     Dates: start: 20130722, end: 20130726
  8. KETOCONAZOLE [Concomitant]
     Indication: PROPHYLAXIS
     Dosage: 1200 MG, DAILY
     Dates: start: 20130806
  9. NOVALGIN [Concomitant]
     Indication: PAIN
     Dosage: 120 DROPS, DAILY
     Dates: start: 20130803
  10. TARGIN [Concomitant]
     Indication: PAIN
     Dosage: 15 MG, DAILY
     Dates: start: 20130827
  11. FORTECORTIN [Concomitant]
     Indication: PAIN
     Dosage: 4 MG, DAILY
     Dates: start: 20130827

REACTIONS (4)
  - Acute myeloid leukaemia [Fatal]
  - Lymphoma [Fatal]
  - Prostate cancer [Fatal]
  - General physical health deterioration [Recovered/Resolved]
